FAERS Safety Report 12140629 (Version 4)
Quarter: 2016Q2

REPORT INFORMATION
  Report Type: Spontaneous
  Country: GB (occurrence: GB)
  Receive Date: 20160303
  Receipt Date: 20160531
  Transmission Date: 20160815
  Serious: Yes (Death, Hospitalization, Other)
  Sender: FDA-Public Use
  Company Number: GB-PFIZER INC-2016121432

PATIENT
  Age: 56 Year
  Sex: Male
  Weight: 72 kg

DRUGS (10)
  1. XALKORI [Suspect]
     Active Substance: CRIZOTINIB
     Indication: LUNG ADENOCARCINOMA STAGE IV
     Dosage: 250 MG, UNK
     Route: 048
     Dates: start: 20150318, end: 20150330
  2. CARBOPLATIN. [Suspect]
     Active Substance: CARBOPLATIN
     Dosage: 500 MG, EVERY 3 WEEKS
     Route: 042
     Dates: start: 20150319
  3. ALIMTA [Suspect]
     Active Substance: PEMETREXED DISODIUM
     Indication: LUNG ADENOCARCINOMA STAGE IV
     Dosage: (750MG)( 80%) (PS-3) CYCLE 1
     Route: 042
     Dates: start: 20150209
  4. CARBOPLATIN. [Suspect]
     Active Substance: CARBOPLATIN
     Indication: LUNG ADENOCARCINOMA
     Dosage: 500 MG CYCLE 1, (500MG) 87% ABS EDTA-110ML/MIN (PS-3)
     Route: 042
     Dates: start: 20150209
  5. VITAMIN B12 [Concomitant]
     Active Substance: CYANOCOBALAMIN
     Indication: SUPPLEMENTATION THERAPY
     Dosage: 1 MG, UNK
     Dates: start: 20150203
  6. ALIMTA [Suspect]
     Active Substance: PEMETREXED DISODIUM
     Dosage: (750MG)( 80%) (PS-3) CYCLE 2
     Route: 042
     Dates: start: 20150302
  7. ALIMTA [Suspect]
     Active Substance: PEMETREXED DISODIUM
     Dosage: 750 MG, EVERY 3 WEEKS
     Route: 042
     Dates: start: 20150319, end: 20150319
  8. FOLIC ACID. [Suspect]
     Active Substance: FOLIC ACID
     Indication: SUPPLEMENTATION THERAPY
     Dosage: 400 MG, 1X/DAY
     Route: 048
     Dates: start: 20150203
  9. CYANOCOBALAMIN. [Concomitant]
     Active Substance: CYANOCOBALAMIN
     Indication: SUPPLEMENTATION THERAPY
  10. CARBOPLATIN. [Suspect]
     Active Substance: CARBOPLATIN
     Dosage: 500 MG CYCLE 2, (500MG) 87% ABS EDTA-110ML/MIN (PS-3)
     Route: 042
     Dates: start: 20150302

REACTIONS (6)
  - Bone marrow failure [Unknown]
  - Lung adenocarcinoma stage IV [Unknown]
  - Bronchopulmonary aspergillosis [Fatal]
  - Cerebral aspergillosis [Fatal]
  - Respiratory failure [Fatal]
  - Disease progression [Unknown]

NARRATIVE: CASE EVENT DATE: 201501
